FAERS Safety Report 4300511-3 (Version None)
Quarter: 2004Q1

REPORT INFORMATION
  Report Type: 
  Country: None (occurrence: None)
  Receive Date: 20040218
  Receipt Date: 20040210
  Transmission Date: 20041129
  Serious: Yes (Life-Threatening, Hospitalization)
  Sender: FDA-Public Use
  Company Number: 04H-078-0249942-00

PATIENT
  Age: 7 Month
  Sex: Male
  Weight: 6 kg

DRUGS (5)
  1. THIOPENTAL SODIUM [Suspect]
     Indication: ANAESTHESIA
     Dosage: 50 MG, 2 IN 1 D, NOT REPORTED
  2. HALOTHANE [Suspect]
     Indication: ANAESTHESIA
     Dosage: 0.5 %, INCREASED SEQ. EVERY 3RD OR 4TH BREATH, INHALATION
  3. NITROUS OXIDE [Concomitant]
  4. OXYGEN [Concomitant]
  5. ISOFLURANE [Concomitant]

REACTIONS (5)
  - BLOOD PRESSURE DECREASED [None]
  - DEPRESSED LEVEL OF CONSCIOUSNESS [None]
  - HEART RATE DECREASED [None]
  - VENTRICULAR EXTRASYSTOLES [None]
  - VENTRICULAR TACHYCARDIA [None]
